FAERS Safety Report 23192793 (Version 4)
Quarter: 2024Q2

REPORT INFORMATION
  Report Type: Spontaneous
  Country: US (occurrence: US)
  Receive Date: 20231116
  Receipt Date: 20240531
  Transmission Date: 20240716
  Serious: Yes (Other)
  Sender: FDA-Public Use
  Company Number: US-SA-SAC20231109001093

PATIENT
  Age: 71 Year
  Sex: Female
  Weight: 57.6 kg

DRUGS (1)
  1. DUPIXENT [Suspect]
     Active Substance: DUPILUMAB
     Indication: Dermatitis atopic
     Dosage: 300 MG, QOW
     Route: 058
     Dates: end: 2024

REACTIONS (9)
  - Rash macular [Unknown]
  - Dry skin [Not Recovered/Not Resolved]
  - Eczema [Not Recovered/Not Resolved]
  - Peripheral swelling [Not Recovered/Not Resolved]
  - Pruritus [Unknown]
  - Eye swelling [Recovered/Resolved]
  - Colon cancer [Unknown]
  - Rash [Unknown]
  - Alopecia [Unknown]

NARRATIVE: CASE EVENT DATE: 20231023
